FAERS Safety Report 6852583-X (Version None)
Quarter: 2010Q3

REPORT INFORMATION
  Report Type: 
  Country: None (occurrence: None)
  Receive Date: 20100717
  Receipt Date: 20071116
  Transmission Date: 20110219
  Serious: No
  Sender: FDA-Public Use
  Company Number: US-PFIZER INC-2007099131

PATIENT
  Sex: Male
  Weight: 56.8 kg

DRUGS (14)
  1. CHANTIX [Suspect]
     Indication: SMOKING CESSATION THERAPY
     Dates: start: 20071105
  2. TAMSULOSIN HYDROCHLORIDE [Concomitant]
  3. MONTELUKAST SODIUM [Concomitant]
  4. ACETYLSALICYLIC ACID [Concomitant]
  5. SAW PALMETTO [Concomitant]
  6. LUTEIN [Concomitant]
  7. DRUG, UNSPECIFIED [Concomitant]
  8. VITAMIN D [Concomitant]
  9. CHONDROITIN/GLUCOSAMINE [Concomitant]
  10. METHYLSULFONYLMETHANE [Concomitant]
  11. PYGEUM AFRICANUM [Concomitant]
  12. ADVAIR DISKUS 100/50 [Concomitant]
     Route: 055
  13. SPIRIVA [Concomitant]
     Route: 055
  14. ALBUTEROL [Concomitant]
     Route: 055

REACTIONS (4)
  - ABNORMAL DREAMS [None]
  - DIARRHOEA [None]
  - MIDDLE INSOMNIA [None]
  - MUSCLE SPASMS [None]
